FAERS Safety Report 9980872 (Version 1)
Quarter: 2014Q1

REPORT INFORMATION
  Report Type: Spontaneous
  Country: US (occurrence: US)
  Receive Date: 20140307
  Receipt Date: 20140307
  Transmission Date: 20141002
  Serious: No
  Sender: FDA-Public Use
  Company Number: US-GLAXOSMITHKLINE-A1009643A

PATIENT
  Sex: Female

DRUGS (4)
  1. REQUIP [Suspect]
     Indication: RESTLESS LEGS SYNDROME
     Dosage: 4MG TWICE PER DAY
     Route: 048
  2. MEDICATION FOR HIGH BLOOD PRESSURE [Concomitant]
  3. ADVAIR [Concomitant]
  4. VENTOLIN [Concomitant]

REACTIONS (3)
  - Overdose [Not Recovered/Not Resolved]
  - Polyarthritis [Unknown]
  - Drug ineffective [Unknown]
